FAERS Safety Report 10064149 (Version 1)
Quarter: 2014Q2

REPORT INFORMATION
  Report Type: Spontaneous
  Country: JP (occurrence: None)
  Receive Date: 20140404
  Receipt Date: 20140404
  Transmission Date: 20141212
  Serious: Yes (Death, Hospitalization)
  Sender: FDA-Public Use
  Company Number: FK201401147

PATIENT
  Age: 72 Year
  Sex: Male

DRUGS (3)
  1. CARBOPLATIN [Suspect]
     Indication: NON-SMALL CELL LUNG CANCER STAGE IIIA
     Dosage: AUC OF 5 ON DAY 1 IN FIRST CYCLE
  2. PACLITAXEL [Suspect]
     Indication: NON-SMALL CELL LUNG CANCER STAGE IIIA
     Dosage: 200 MG/M2, ON DAY 1 IN FIRST CYCLE
  3. HYDROCORTISONE (HYDROCORTISONE) [Concomitant]

REACTIONS (6)
  - Septic shock [None]
  - Colitis ischaemic [None]
  - Candida infection [None]
  - Pancytopenia [None]
  - Febrile neutropenia [None]
  - Blood sodium decreased [None]
